FAERS Safety Report 7681573-2 (Version None)
Quarter: 2011Q3

REPORT INFORMATION
  Report Type: 
  Country: None (occurrence: None)
  Receive Date: 20110812
  Receipt Date: 20110804
  Transmission Date: 20111222
  Serious: Yes (Hospitalization)
  Sender: FDA-Public Use
  Company Number: JP-ASTRAZENECA-2011SE45941

PATIENT
  Age: 75 Year
  Sex: Female
  Weight: 45 kg

DRUGS (7)
  1. PREDNISOLONE [Concomitant]
     Route: 048
     Dates: start: 20110622
  2. IRESSA [Suspect]
     Indication: LUNG ADENOCARCINOMA
     Route: 048
     Dates: start: 20110614, end: 20110726
  3. MUCOSTA [Concomitant]
     Route: 048
     Dates: start: 20110415
  4. OMEPRAZOLE [Concomitant]
     Route: 048
     Dates: start: 20110415
  5. LOXONIN [Concomitant]
     Route: 048
     Dates: start: 20110415
  6. OXYCONTIN [Concomitant]
     Route: 048
     Dates: start: 20110513
  7. CRESTOR [Concomitant]
     Route: 048
     Dates: start: 20110615

REACTIONS (1)
  - LUNG DISORDER [None]
